FAERS Safety Report 13086124 (Version 4)
Quarter: 2017Q1

REPORT INFORMATION
  Report Type: Spontaneous
  Country: ES (occurrence: ES)
  Receive Date: 20170104
  Receipt Date: 20170127
  Transmission Date: 20170428
  Serious: Yes (Other)
  Sender: FDA-Public Use
  Company Number: PHHY2016ES180949

PATIENT
  Age: 50 Year
  Sex: Female

DRUGS (2)
  1. LITHIUM. [Concomitant]
     Active Substance: LITHIUM
     Indication: BIPOLAR DISORDER
     Dosage: 800 MG, QD
     Route: 065
  2. OXCARBAZEPINE. [Suspect]
     Active Substance: OXCARBAZEPINE
     Indication: BIPOLAR DISORDER
     Dosage: 1200 MG, QD
     Route: 065
     Dates: start: 20131025

REACTIONS (5)
  - Confusional state [Unknown]
  - Mania [Unknown]
  - Drug withdrawal syndrome [Unknown]
  - Central nervous system lesion [Recovered/Resolved]
  - Encephalopathy [Unknown]
